FAERS Safety Report 16940481 (Version 2)
Quarter: 2020Q1

REPORT INFORMATION
  Report Type: Spontaneous
  Country: US (occurrence: US)
  Receive Date: 20191021
  Receipt Date: 20200106
  Transmission Date: 20200409
  Serious: Yes (Other)
  Sender: FDA-Public Use
  Company Number: US-BAYER-2019-189506

PATIENT
  Age: 37 Year
  Sex: Female
  Weight: 71.21 kg

DRUGS (9)
  1. METHYLDOPA. [Concomitant]
     Active Substance: METHYLDOPA
     Dosage: 250 MG, BID
  2. LEXAPRO [Concomitant]
     Active Substance: ESCITALOPRAM OXALATE
     Indication: ANXIETY
     Dosage: 10 MG, QD
     Route: 048
  3. PRENATAL [ASCORBIC ACID;CALCIUM GLUCONATE;CUPRIC CARBONATE, BASIC; [Concomitant]
  4. TAMIFLU [Concomitant]
     Active Substance: OSELTAMIVIR PHOSPHATE
     Dosage: 75 MG, BID
     Route: 048
  5. VALSARTAN. [Concomitant]
     Active Substance: VALSARTAN
  6. LOSARTAN POTASSIUM. [Concomitant]
     Active Substance: LOSARTAN POTASSIUM
     Dosage: 1 DF, QD
     Route: 048
  7. MIRENA [Suspect]
     Active Substance: LEVONORGESTREL
     Indication: CONTRACEPTION
     Dosage: 20 MCG/24HR, CONT
     Route: 015
     Dates: start: 20190818, end: 20191015
  8. MIRENA [Suspect]
     Active Substance: LEVONORGESTREL
     Indication: CONTRACEPTION
  9. ORTHO MICRONOR [Concomitant]
     Active Substance: NORETHINDRONE
     Dosage: 0.35 MG, QD
     Route: 048

REACTIONS (3)
  - Medical device pain [None]
  - Anxiety [None]
  - Device dislocation [Recovered/Resolved]

NARRATIVE: CASE EVENT DATE: 20191015
